FAERS Safety Report 24677361 (Version 2)
Quarter: 2024Q4

REPORT INFORMATION
  Report Type: Spontaneous
  Country: DE (occurrence: DE)
  Receive Date: 20241129
  Receipt Date: 20241130
  Transmission Date: 20250115
  Serious: No
  Sender: CELLTRION
  Company Number: DE-CELLTRION INC.-2024DE029853

PATIENT

DRUGS (1)
  1. INFLIXIMAB [Suspect]
     Active Substance: INFLIXIMAB
     Indication: Colitis ulcerative
     Dosage: 720 MG EVERY 6 WEEKS
     Route: 065

REACTIONS (2)
  - Therapeutic response delayed [Unknown]
  - Intentional product use issue [Unknown]
